FAERS Safety Report 25261877 (Version 2)
Quarter: 2025Q2

REPORT INFORMATION
  Report Type: Other
  Country: US (occurrence: US)
  Receive Date: 20250502
  Receipt Date: 20250623
  Transmission Date: 20250717
  Serious: No
  Sender: APOTEX
  Company Number: US-APOTEX-2025AP005022

PATIENT

DRUGS (1)
  1. LISDEXAMFETAMINE DIMESYLATE [Suspect]
     Active Substance: LISDEXAMFETAMINE DIMESYLATE
     Indication: Product used for unknown indication
     Route: 065

REACTIONS (5)
  - Product substitution issue [Unknown]
  - Fatigue [Unknown]
  - Irritability [Unknown]
  - Depression [Unknown]
  - Therapeutic response changed [Unknown]
